FAERS Safety Report 12714366 (Version 1)
Quarter: 2016Q3

REPORT INFORMATION
  Report Type: Spontaneous
  Country: US (occurrence: US)
  Receive Date: 20160905
  Receipt Date: 20160905
  Transmission Date: 20161109
  Serious: No
  Sender: FDA-Public Use
  Company Number: US-JAZZ-2016-US-008895

PATIENT
  Sex: Female

DRUGS (26)
  1. XYREM [Suspect]
     Active Substance: SODIUM OXYBATE
     Dosage: 4.5 G, BID
     Route: 048
     Dates: start: 201501
  2. BIOTIN [Concomitant]
     Active Substance: BIOTIN
  3. PROAIR HFA [Concomitant]
     Active Substance: ALBUTEROL SULFATE
  4. NAPROXEN. [Concomitant]
     Active Substance: NAPROXEN
  5. LORAZEPAM. [Concomitant]
     Active Substance: LORAZEPAM
  6. ACYCLOVIR. [Concomitant]
     Active Substance: ACYCLOVIR
  7. ATIVAN [Concomitant]
     Active Substance: LORAZEPAM
  8. TRAZODONE [Concomitant]
     Active Substance: TRAZODONE HYDROCHLORIDE
  9. XYREM [Suspect]
     Active Substance: SODIUM OXYBATE
     Dosage: DOSE ADJUSTMENTS
     Route: 048
  10. LAMOTRIGINE. [Concomitant]
     Active Substance: LAMOTRIGINE
  11. SPIRIVA [Concomitant]
     Active Substance: TIOTROPIUM BROMIDE MONOHYDRATE
  12. BACLOFEN. [Concomitant]
     Active Substance: BACLOFEN
  13. CIPRO [Concomitant]
     Active Substance: CIPROFLOXACIN HYDROCHLORIDE
  14. MODAFINIL. [Concomitant]
     Active Substance: MODAFINIL
  15. PROMETRIUM [Concomitant]
     Active Substance: PROGESTERONE
  16. CYMBALTA [Concomitant]
     Active Substance: DULOXETINE HYDROCHLORIDE
  17. LEVOTHYROXINE. [Concomitant]
     Active Substance: LEVOTHYROXINE
  18. VITAMIN D [Concomitant]
     Active Substance: CHOLECALCIFEROL
  19. VITAMIN B12 [Concomitant]
     Active Substance: CYANOCOBALAMIN
  20. ROZEREM [Concomitant]
     Active Substance: RAMELTEON
  21. SPIRONOLACTONE. [Concomitant]
     Active Substance: SPIRONOLACTONE
  22. ABILIFY [Concomitant]
     Active Substance: ARIPIPRAZOLE
  23. FOLIC ACID. [Concomitant]
     Active Substance: FOLIC ACID
  24. XYREM [Suspect]
     Active Substance: SODIUM OXYBATE
     Indication: NARCOLEPSY
     Dosage: 2.25 G, BID
     Route: 048
     Dates: start: 200603, end: 200712
  25. TYLENOL EXTRA STRENGTH [Concomitant]
     Active Substance: ACETAMINOPHEN
  26. NEURONTIN [Concomitant]
     Active Substance: GABAPENTIN

REACTIONS (1)
  - Memory impairment [Not Recovered/Not Resolved]
